FAERS Safety Report 4627486-1 (Version None)
Quarter: 2005Q1

REPORT INFORMATION
  Report Type: 
  Country: None (occurrence: None)
  Receive Date: 20050330
  Receipt Date: 20050316
  Transmission Date: 20050727
  Serious: Yes (Hospitalization)
  Sender: FDA-Public Use
  Company Number: 2005BI002299

PATIENT
  Sex: Female

DRUGS (1)
  1. AVONEX [Suspect]
     Indication: MULTIPLE SCLEROSIS
     Dosage: 30 UG; QW; IM
     Route: 030
     Dates: start: 20041110, end: 20041216

REACTIONS (11)
  - ABASIA [None]
  - CHEST PAIN [None]
  - CONSTIPATION [None]
  - CORONARY ARTERY OCCLUSION [None]
  - DYSPHAGIA [None]
  - INCONTINENCE [None]
  - INFLUENZA LIKE ILLNESS [None]
  - MICTURITION URGENCY [None]
  - MYOCARDIAL INFARCTION [None]
  - PAIN IN EXTREMITY [None]
  - TREMOR [None]
